FAERS Safety Report 14565917 (Version 1)
Quarter: 2018Q1

REPORT INFORMATION
  Report Type: Spontaneous
  Country: US (occurrence: US)
  Receive Date: 20180222
  Receipt Date: 20180222
  Transmission Date: 20180509
  Serious: Yes (Hospitalization)
  Sender: FDA-Public Use
  Company Number: None

PATIENT
  Age: 81 Year
  Sex: Male
  Weight: 75.1 kg

DRUGS (3)
  1. ELOXATIN [Suspect]
     Active Substance: OXALIPLATIN
     Dates: end: 20180206
  2. LEUCOVORIN CALCIUM. [Suspect]
     Active Substance: LEUCOVORIN CALCIUM
     Dates: end: 20180206
  3. 5-FLUOROURACIL (5-FU) [Suspect]
     Active Substance: FLUOROURACIL
     Dates: end: 20180206

REACTIONS (3)
  - Arthralgia [None]
  - Hip fracture [None]
  - Fall [None]

NARRATIVE: CASE EVENT DATE: 20180215
